FAERS Safety Report 13869093 (Version 2)
Quarter: 2017Q3

REPORT INFORMATION
  Report Type: Report from Study
  Country: US (occurrence: US)
  Receive Date: 20170815
  Receipt Date: 20170925
  Transmission Date: 20171127
  Serious: Yes (Hospitalization, Other)
  Sender: FDA-Public Use
  Company Number: US-GILEAD-2017-0286454

PATIENT
  Age: 90 Year
  Sex: Female
  Weight: 75.74 kg

DRUGS (7)
  1. COENZYME Q10 [Concomitant]
     Active Substance: UBIDECARENONE
  2. SYNTHROID [Concomitant]
     Active Substance: LEVOTHYROXINE SODIUM
  3. ADCIRCA [Concomitant]
     Active Substance: TADALAFIL
  4. LOSARTAN. [Concomitant]
     Active Substance: LOSARTAN
  5. AMBRISENTAN [Suspect]
     Active Substance: AMBRISENTAN
     Indication: PRODUCT USED FOR UNKNOWN INDICATION
     Dosage: 5 MG, QD
     Route: 065
     Dates: start: 20141103
  6. MULTAQ [Concomitant]
     Active Substance: DRONEDARONE
  7. XARELTO [Concomitant]
     Active Substance: RIVAROXABAN

REACTIONS (4)
  - Hip fracture [Unknown]
  - Dyspnoea [Unknown]
  - Drug dose omission [Unknown]
  - Epistaxis [Recovered/Resolved]

NARRATIVE: CASE EVENT DATE: 20170725
